FAERS Safety Report 4446149-9 (Version None)
Quarter: 2004Q3

REPORT INFORMATION
  Report Type: 
  Country: None (occurrence: None)
  Receive Date: 20040907
  Receipt Date: 20040825
  Transmission Date: 20050211
  Serious: Yes (Other)
  Sender: FDA-Public Use
  Company Number: JP-BRISTOL-MYERS SQUIBB COMPANY-12685459

PATIENT
  Age: 40 Year
  Sex: Male

DRUGS (3)
  1. STAVUDINE [Suspect]
     Indication: HIV INFECTION
     Dates: start: 19980901
  2. LAMIVUDINE [Suspect]
     Indication: HIV INFECTION
     Dates: start: 19980901
  3. NEVIRAPINE [Suspect]
     Indication: HIV INFECTION
     Dates: start: 19980901

REACTIONS (2)
  - IMMUNE RECONSTITUTION SYNDROME [None]
  - PNEUMOCYSTIS CARINII PNEUMONIA [None]
